FAERS Safety Report 8533585-4 (Version None)
Quarter: 2012Q3

REPORT INFORMATION
  Report Type: 
  Country: None (occurrence: None)
  Receive Date: 20120712
  Receipt Date: 20120629
  Transmission Date: 20120928
  Serious: Yes (Other)
  Sender: FDA-Public Use
  Company Number: IMP_05926_2012

PATIENT
  Age: 85 Year
  Sex: Female

DRUGS (6)
  1. MELOXICAM [Concomitant]
  2. OMEPRAZOLE [Suspect]
     Indication: OSTEOARTHRITIS
     Dosage: DF
  3. ASPIRIN [Concomitant]
  4. BENDROFLUMETHIAZIDE [Concomitant]
  5. RAMIPRIL [Concomitant]
  6. ISOSORBIDE MONONITRATE [Concomitant]

REACTIONS (2)
  - CUTANEOUS LUPUS ERYTHEMATOSUS [None]
  - RED BLOOD CELL SEDIMENTATION RATE INCREASED [None]
